FAERS Safety Report 5023965-6 (Version None)
Quarter: 2006Q2

REPORT INFORMATION
  Report Type: 
  Country: None (occurrence: None)
  Receive Date: 20060426
  Receipt Date: 20060213
  Transmission Date: 20061013
  Serious: Yes (Other)
  Sender: FDA-Public Use
  Company Number: 2006021510

PATIENT
  Age: 27 Year
  Sex: Female
  Weight: 72.5755 kg

DRUGS (4)
  1. LYRICA [Suspect]
     Indication: FISTULA
     Dosage: 150 MG (50 MG, 3 IN 1 D),
     Dates: start: 20060207
  2. LORTAB [Concomitant]
  3. SOMA [Concomitant]
  4. VICODIN [Concomitant]

REACTIONS (1)
  - DRUG INEFFECTIVE [None]
